FAERS Safety Report 17773077 (Version 2)
Quarter: 2020Q2

REPORT INFORMATION
  Report Type: Report from Study
  Country: US (occurrence: US)
  Receive Date: 20200512
  Receipt Date: 20200630
  Transmission Date: 20200714
  Serious: Yes (Hospitalization)
  Sender: FDA-Public Use
  Company Number: US-ACTELION-A-NJ2020-204015

PATIENT
  Age: 79 Year
  Sex: Female
  Weight: 38.1 kg

DRUGS (7)
  1. SILDENAFIL. [Concomitant]
     Active Substance: SILDENAFIL
  2. OPSUMIT [Suspect]
     Active Substance: MACITENTAN
     Indication: PULMONARY ARTERIAL HYPERTENSION
     Dosage: UNK, QD
     Route: 048
     Dates: start: 202003
  3. VITAMIN C [Concomitant]
     Active Substance: ASCORBIC ACID
  4. TYLENOL [Concomitant]
     Active Substance: ACETAMINOPHEN
     Dosage: 325 MG
  5. VITAMIN D [Concomitant]
     Active Substance: VITAMIN D NOS
  6. IMODIUM [Concomitant]
     Active Substance: LOPERAMIDE HYDROCHLORIDE
  7. SILDENAFIL CITRATE. [Concomitant]
     Active Substance: SILDENAFIL CITRATE

REACTIONS (10)
  - Urostomy complication [Unknown]
  - Dyspepsia [Recovered/Resolved]
  - Gastrointestinal stoma complication [Unknown]
  - Drug ineffective [Not Recovered/Not Resolved]
  - Alopecia [Unknown]
  - Product dose omission [Unknown]
  - Visual impairment [Unknown]
  - Kidney infection [Unknown]
  - Headache [Recovered/Resolved]
  - Vomiting [Unknown]

NARRATIVE: CASE EVENT DATE: 202003
